FAERS Safety Report 6348214-8 (Version None)
Quarter: 2009Q3

REPORT INFORMATION
  Report Type: 
  Country: None (occurrence: None)
  Receive Date: 20090908
  Receipt Date: 20090828
  Transmission Date: 20100115
  Serious: Yes (Hospitalization, Other)
  Sender: FDA-Public Use
  Company Number: CIP09002175

PATIENT
  Age: 82 Year
  Sex: Female

DRUGS (2)
  1. RISEDRONATE SODIUM [Suspect]
     Indication: OSTEOPOROSIS
     Dosage: 2.5 G, DAILY, ORAL
     Route: 048
     Dates: start: 20090113, end: 20090701
  2. DASEN (SERRAPEPTASE) [Concomitant]

REACTIONS (4)
  - FACE INJURY [None]
  - FALL [None]
  - OSTEOMYELITIS [None]
  - SKULL FRACTURE [None]
